FAERS Safety Report 4861591-X (Version None)
Quarter: 2005Q4

REPORT INFORMATION
  Report Type: 
  Country: None (occurrence: None)
  Receive Date: 20051220
  Receipt Date: 20030825
  Transmission Date: 20060501
  Serious: Yes (Hospitalization, Disabling)
  Sender: FDA-Public Use
  Company Number: FR-BOEHRINGER INGELHEIM PHARMACEUTICALS, INC.-2003-FF-00442FF

PATIENT

DRUGS (7)
  1. VIRAMUNE [Suspect]
     Indication: VERTICAL INFECTION TRANSMISSION
     Route: 048
     Dates: start: 20030423, end: 20030423
  2. VIRAMUNE [Suspect]
     Route: 015
     Dates: end: 20030421
  3. VIRAMUNE [Suspect]
     Indication: HIV INFECTION
  4. RETROVIR [Concomitant]
     Indication: VERTICAL INFECTION TRANSMISSION
     Route: 048
     Dates: start: 20030421, end: 20030523
  5. RETROVIR [Concomitant]
     Route: 048
     Dates: start: 20030524, end: 20030601
  6. RETROVIR [Concomitant]
     Route: 015
     Dates: start: 20030421, end: 20030421
  7. COMBIVIR [Concomitant]
     Indication: HIV INFECTION
     Route: 015
     Dates: end: 20030421

REACTIONS (4)
  - ANAEMIA [None]
  - CAESAREAN SECTION [None]
  - DRUG EXPOSURE DURING PREGNANCY [None]
  - VENTRICULAR SEPTAL DEFECT [None]
